FAERS Safety Report 5657086-6 (Version None)
Quarter: 2008Q1

REPORT INFORMATION
  Report Type: 
  Country: None (occurrence: None)
  Receive Date: 20080310
  Receipt Date: 20080228
  Transmission Date: 20080703
  Serious: Yes (Other)
  Sender: FDA-Public Use
  Company Number: US-JNJFOC-20080300057

PATIENT
  Age: 11 Year
  Sex: Female
  Weight: 42.64 kg

DRUGS (2)
  1. CHILDRENS TYLENOL PLUS COLD GRAPE [Suspect]
     Indication: NASAL CONGESTION
     Route: 048
  2. CHILDRENS TYLENOL PLUS COLD GRAPE [Suspect]
     Indication: PHARYNGOLARYNGEAL PAIN
     Route: 048

REACTIONS (2)
  - DIZZINESS [None]
  - SYNCOPE [None]
